FAERS Safety Report 5993195-X (Version None)
Quarter: 2008Q4

REPORT INFORMATION
  Report Type: 
  Country: None (occurrence: None)
  Receive Date: 20081212
  Receipt Date: 20080604
  Transmission Date: 20090506
  Serious: No
  Sender: FDA-Public Use
  Company Number: US-AMGEN-KDL284901

PATIENT
  Sex: Male

DRUGS (1)
  1. ENBREL [Suspect]
     Indication: ANKYLOSING SPONDYLITIS
     Route: 058
     Dates: start: 20070506

REACTIONS (4)
  - FEELING ABNORMAL [None]
  - HEADACHE [None]
  - MUSCULOSKELETAL DISCOMFORT [None]
  - TOOTH ABSCESS [None]
